FAERS Safety Report 11348988 (Version 2)
Quarter: 2015Q3

REPORT INFORMATION
  Report Type: Report from Study
  Country: US (occurrence: US)
  Receive Date: 20150807
  Receipt Date: 20150819
  Transmission Date: 20151125
  Serious: Yes (Death, Hospitalization)
  Sender: FDA-Public Use
  Company Number: US-ACTELION-A-US2015-122004

PATIENT
  Age: 71 Year
  Sex: Male

DRUGS (3)
  1. ESBRIET [Concomitant]
     Active Substance: PIRFENIDONE
  2. OXYGEN. [Concomitant]
     Active Substance: OXYGEN
  3. MACITENTAN [Suspect]
     Active Substance: MACITENTAN
     Indication: PULMONARY HYPERTENSION
     Dosage: 10 MG, UNK
     Route: 048
     Dates: start: 20150528, end: 201507

REACTIONS (2)
  - Pulmonary fibrosis [Fatal]
  - Pneumonia [Fatal]
